FAERS Safety Report 9971711 (Version 1)
Quarter: 2014Q1

REPORT INFORMATION
  Report Type: Report from Study
  Country: US (occurrence: US)
  Receive Date: 20140306
  Receipt Date: 20140306
  Transmission Date: 20141002
  Serious: No
  Sender: FDA-Public Use
  Company Number: US-ABBVIE-13P-163-1153423-00

PATIENT
  Age: 54 Year
  Sex: Male
  Weight: 101.7 kg

DRUGS (6)
  1. HUMIRA [Suspect]
     Indication: COLITIS ULCERATIVE
     Dates: start: 201303
  2. IMURAN [Concomitant]
     Indication: COLITIS ULCERATIVE
  3. DICYCLOMINE [Concomitant]
     Indication: COLITIS ULCERATIVE
  4. AMITRIPTYLINE [Concomitant]
     Indication: DEPRESSION
  5. FISH OIL [Concomitant]
     Indication: SUPPLEMENTATION THERAPY
  6. TUMERIC [Concomitant]
     Indication: SUPPLEMENTATION THERAPY

REACTIONS (3)
  - Frequent bowel movements [Not Recovered/Not Resolved]
  - Rectal haemorrhage [Recovered/Resolved]
  - Arthritis [Not Recovered/Not Resolved]
